FAERS Safety Report 6274257-9 (Version None)
Quarter: 2009Q3

REPORT INFORMATION
  Report Type: 
  Country: None (occurrence: None)
  Receive Date: 20090716
  Receipt Date: 20090703
  Transmission Date: 20100115
  Serious: Yes (Hospitalization)
  Sender: FDA-Public Use
  Company Number: A-CH2009-26207

PATIENT
  Age: 2 Year
  Sex: Male
  Weight: 10 kg

DRUGS (3)
  1. ZAVESCA [Suspect]
     Indication: NIEMANN-PICK DISEASE
     Dosage: 50 MG TID,ORAL 25 MG, BID,ORAL
     Route: 048
     Dates: start: 20090202
  2. ZAVESCA [Suspect]
     Indication: NIEMANN-PICK DISEASE
     Dosage: 50 MG TID,ORAL 25 MG, BID,ORAL
     Route: 048
     Dates: start: 20090304
  3. OMEPRAZOLE [Concomitant]

REACTIONS (5)
  - ASPIRATION [None]
  - BRONCHIAL OBSTRUCTION [None]
  - DIARRHOEA [None]
  - PANCYTOPENIA [None]
  - PYREXIA [None]
